FAERS Safety Report 9508679 (Version 3)
Quarter: 2014Q1

REPORT INFORMATION
  Report Type: Spontaneous
  Country: US (occurrence: US)
  Receive Date: 20130909
  Receipt Date: 20140214
  Transmission Date: 20141002
  Serious: Yes (Hospitalization)
  Sender: FDA-Public Use
  Company Number: US-GLAXOSMITHKLINE-A1040512A

PATIENT
  Age: 67 Year
  Sex: Male

DRUGS (7)
  1. VOTRIENT [Suspect]
     Indication: RENAL CANCER
     Route: 048
  2. ROSUVASTATIN CALCIUM [Concomitant]
  3. GLIMEPIRIDE [Concomitant]
  4. WARFARIN [Concomitant]
  5. METFORMIN [Concomitant]
  6. DIVALPROEX [Concomitant]
  7. VITAMIN D [Concomitant]

REACTIONS (9)
  - Investigation [Unknown]
  - Convulsion [Unknown]
  - Asthenia [Unknown]
  - Balance disorder [Unknown]
  - Aphasia [Unknown]
  - Mental status changes [Unknown]
  - Pneumonia [Unknown]
  - Hypertension [Unknown]
  - Grand mal convulsion [Unknown]
